FAERS Safety Report 5536935-6 (Version None)
Quarter: 2007Q4

REPORT INFORMATION
  Report Type: 
  Country: None (occurrence: None)
  Receive Date: 20071207
  Receipt Date: 20071129
  Transmission Date: 20080405
  Serious: Yes (Hospitalization)
  Sender: FDA-Public Use
  Company Number: PHFR2007GB03499

PATIENT
  Age: 83 Year
  Sex: Female

DRUGS (1)
  1. TEGRETOL [Suspect]
     Dosage: 400 MG NOCTE
     Route: 065

REACTIONS (3)
  - DEHYDRATION [None]
  - GLOMERULAR FILTRATION RATE DECREASED [None]
  - URINARY TRACT INFECTION [None]
